FAERS Safety Report 6613304-9 (Version None)
Quarter: 2010Q1

REPORT INFORMATION
  Report Type: 
  Country: None (occurrence: None)
  Receive Date: 20100304
  Receipt Date: 20100222
  Transmission Date: 20100710
  Serious: Yes (Hospitalization, Other)
  Sender: FDA-Public Use
  Company Number: PHEH2010US01751

PATIENT
  Sex: Female

DRUGS (5)
  1. CLOZARIL [Suspect]
     Indication: SCHIZOPHRENIA
     Dosage: 300 MG, QD
     Route: 048
  2. CLOZARIL [Suspect]
     Dosage: 400 MG DAILY
  3. CLOZAPINE [Suspect]
     Dosage: 400 MG, UNK
  4. GEODON [Concomitant]
     Indication: SCHIZOPHRENIA
     Dosage: 40 MG, QD
     Route: 048
  5. SEROQUEL [Concomitant]
     Indication: SCHIZOPHRENIA
     Dosage: 400 MG, QD
     Route: 048

REACTIONS (2)
  - NON-HODGKIN'S LYMPHOMA [None]
  - WHITE BLOOD CELL COUNT DECREASED [None]
